FAERS Safety Report 4931035-8 (Version None)
Quarter: 2006Q1

REPORT INFORMATION
  Report Type: 
  Country: None (occurrence: None)
  Receive Date: 20060227
  Receipt Date: 20060215
  Transmission Date: 20060701
  Serious: Yes (Hospitalization, Disabling)
  Sender: FDA-Public Use
  Company Number: 200610062BWH

PATIENT
  Sex: Female

DRUGS (7)
  1. ADALAT CC [Suspect]
     Indication: MYOCARDIAL INFARCTION
     Dosage: SEE IMAGE
     Dates: end: 20051001
  2. ADALAT CC [Suspect]
     Indication: MYOCARDIAL INFARCTION
     Dosage: SEE IMAGE
     Dates: start: 19900101
  3. LISINOPRIL [Concomitant]
  4. LIPITOR [Concomitant]
  5. NEXIUM [Concomitant]
  6. ASPIRIN [Concomitant]
  7. XANAX [Concomitant]

REACTIONS (8)
  - ABDOMINAL PAIN UPPER [None]
  - ANXIETY [None]
  - CHOLECYSTECTOMY [None]
  - DEPRESSION [None]
  - HIATUS HERNIA [None]
  - IMPAIRED WORK ABILITY [None]
  - PARTNER STRESS [None]
  - TACHYCARDIA [None]
